FAERS Safety Report 14298148 (Version 1)
Quarter: 2017Q4

REPORT INFORMATION
  Report Type: Spontaneous
  Country: US (occurrence: US)
  Receive Date: 20171218
  Receipt Date: 20171218
  Transmission Date: 20180321
  Serious: No
  Sender: FDA-Public Use
  Company Number: US-BTG INTERNATIONAL, LTD.-BTG01176

PATIENT

DRUGS (1)
  1. VARITHENA [Suspect]
     Active Substance: POLIDOCANOL
     Indication: PRODUCT USED FOR UNKNOWN INDICATION
     Dosage: UNK
     Dates: start: 20170126, end: 20170126

REACTIONS (3)
  - Contusion [Recovering/Resolving]
  - Discomfort [Unknown]
  - Thrombosis [Unknown]

NARRATIVE: CASE EVENT DATE: 20170204
